FAERS Safety Report 10647766 (Version 3)
Quarter: 2015Q1

REPORT INFORMATION
  Report Type: Report from Study
  Country: US (occurrence: US)
  Receive Date: 20141212
  Receipt Date: 20150116
  Transmission Date: 20150720
  Serious: Yes (Hospitalization)
  Sender: FDA-Public Use
  Company Number: US-GILEAD-2014-0126229

PATIENT
  Age: 59 Year
  Sex: Female
  Weight: 48.98 kg

DRUGS (2)
  1. RIBAVIRIN. [Concomitant]
     Active Substance: RIBAVIRIN
     Dosage: 1000 MG, QD
     Route: 048
     Dates: start: 20141104, end: 20141201
  2. SOFOSBUVIR [Suspect]
     Active Substance: SOFOSBUVIR
     Indication: HEPATITIS C
     Dosage: 400 MG, QD
     Route: 048
     Dates: start: 20141104, end: 20141201

REACTIONS (18)
  - Abdominal pain upper [Unknown]
  - Nausea [Unknown]
  - Fatigue [Unknown]
  - Back pain [Recovered/Resolved]
  - Irritability [Unknown]
  - Asthenia [Unknown]
  - Confusional state [Unknown]
  - Dry mouth [Unknown]
  - Vaginal discharge [Unknown]
  - Therapy cessation [Unknown]
  - Abdominal distension [Unknown]
  - Tremor [Unknown]
  - Chronic obstructive pulmonary disease [Recovered/Resolved]
  - Decreased appetite [Unknown]
  - Sinus disorder [Unknown]
  - Oropharyngeal pain [Unknown]
  - Amnesia [Unknown]
  - Weight decreased [Unknown]
